FAERS Safety Report 12216033 (Version 1)
Quarter: 2016Q1

REPORT INFORMATION
  Report Type: Spontaneous
  Country: FR (occurrence: FR)
  Receive Date: 20160329
  Receipt Date: 20160329
  Transmission Date: 20160526
  Serious: Yes (Hospitalization)
  Sender: FDA-Public Use
  Company Number: FR-ASTRAZENECA-2016SE32074

PATIENT
  Age: 665 Month
  Sex: Female

DRUGS (7)
  1. XEROQUEL [Concomitant]
     Active Substance: QUETIAPINE FUMARATE
  2. INEXIUM [Suspect]
     Active Substance: ESOMEPRAZOLE
     Route: 048
     Dates: start: 20151222, end: 20160216
  3. XANAX [Concomitant]
     Active Substance: ALPRAZOLAM
  4. CYMBALTA [Concomitant]
     Active Substance: DULOXETINE HYDROCHLORIDE
  5. OMEPRAZOLE. [Suspect]
     Active Substance: OMEPRAZOLE
     Dosage: 40 MG, UNKNOWN (NON AZ PRODUCT)
     Route: 042
     Dates: start: 20151218, end: 20151222
  6. STILNOX [Concomitant]
     Active Substance: ZOLPIDEM TARTRATE
  7. LIVIAL [Concomitant]
     Active Substance: TIBOLONE

REACTIONS (1)
  - Subacute cutaneous lupus erythematosus [Not Recovered/Not Resolved]

NARRATIVE: CASE EVENT DATE: 201512
